FAERS Safety Report 21300760 (Version 2)
Quarter: 2022Q3

REPORT INFORMATION
  Report Type: Report from Study
  Country: ES (occurrence: ES)
  Receive Date: 20220907
  Receipt Date: 20220912
  Transmission Date: 20221027
  Serious: Yes (Hospitalization, Other)
  Sender: FDA-Public Use
  Company Number: ES-009507513-2208ESP009709

PATIENT
  Age: 75 Year
  Sex: Female
  Weight: 53.4 kg

DRUGS (20)
  1. PACLITAXEL [Suspect]
     Active Substance: PACLITAXEL
     Indication: Neoplasm malignant
     Dosage: DAYS 1, 8 AND 15 EVERY 28 DAYS?DOSE ADMINISTERED: 184 MG
     Route: 042
     Dates: start: 20220819, end: 20220819
  2. GEMCITABINE [Suspect]
     Active Substance: GEMCITABINE
     Indication: Neoplasm malignant
     Dosage: DAYS 1, 8 AND 15 EVERY 28 DAYS?(DOSE ADMINISTERED: 1470 MG)
     Route: 042
     Dates: start: 20220819, end: 20220819
  3. PEMBROLIZUMAB [Suspect]
     Active Substance: PEMBROLIZUMAB
     Indication: Neoplasm malignant
     Dosage: (VOLUME OF INFUSION: 108 ML)
     Route: 042
     Dates: start: 20220819, end: 20220819
  4. MK-0482 [Suspect]
     Active Substance: MK-0482
     Indication: Neoplasm malignant
     Dosage: (VOLUME OF INFUSION: 100 ML)
     Route: 042
     Dates: start: 20220819, end: 20220819
  5. BUSCAPINA [HYOSCINE BUTYLBROMIDE] [Concomitant]
     Indication: Ill-defined disorder
     Dosage: [1]  10 MG DAILY, FREQ: QD
     Route: 048
  6. BUSCAPINA [HYOSCINE BUTYLBROMIDE] [Concomitant]
     Dosage: 10 MG DAILY, FREQ: QD
     Route: 048
  7. ASPIRIN [Concomitant]
     Active Substance: ASPIRIN
     Indication: Ill-defined disorder
     Dosage: [3]  100 MG DAILY, FREQ: QD
     Route: 048
  8. ASPIRIN [Concomitant]
     Active Substance: ASPIRIN
     Dosage: 100 MG DAILY, FREQ: QD
     Route: 048
  9. DIPYRONE [Concomitant]
     Active Substance: DIPYRONE
     Indication: Ill-defined disorder
     Dosage: [8]  575 MG DAILY, FREQ: TID
     Route: 048
  10. DIPYRONE [Concomitant]
     Active Substance: DIPYRONE
     Dosage: 575 MG DAILY, FREQ: TID
     Route: 048
  11. ACETAMINOPHEN [Concomitant]
     Active Substance: ACETAMINOPHEN
     Indication: Ill-defined disorder
     Dosage: [9]  1000 MG DAILY, FREQ: TID
     Route: 048
  12. ACETAMINOPHEN [Concomitant]
     Active Substance: ACETAMINOPHEN
     Dosage: 1000 MG DAILY, FREQ: TID
     Route: 048
  13. MOVICOL [Concomitant]
     Active Substance: POLYETHYLENE GLYCOL 3350\POTASSIUM CHLORIDE\SODIUM BICARBONATE\SODIUM CHLORIDE
     Indication: Ill-defined disorder
     Dosage: 1 BAG, DAILY ,PRN
     Route: 048
  14. HYDROXYZINE [Concomitant]
     Active Substance: HYDROXYZINE HYDROCHLORIDE
     Indication: Ill-defined disorder
     Dosage: 25 MG DAILY, FREQ: QD
     Route: 048
  15. PREGABALIN [Concomitant]
     Active Substance: PREGABALIN
     Indication: Ill-defined disorder
     Dosage: 12 MG DAILY, FREQ: QD
     Route: 048
  16. BISOPROLOL [Concomitant]
     Active Substance: BISOPROLOL
     Indication: Ill-defined disorder
     Dosage: 3 MG DAILY, FREQ: QD
     Route: 048
  17. LERCANIDIPINE [Concomitant]
     Active Substance: LERCANIDIPINE
     Indication: Ill-defined disorder
     Dosage: 10 MG DAILY, FREQ: QD
     Route: 048
  18. METOCLOPRAMIDE [Concomitant]
     Active Substance: METOCLOPRAMIDE
     Indication: Premedication
     Dosage: 20 MG DAILY, FREQ: ONCE
     Route: 048
     Dates: start: 20220819, end: 20220819
  19. DOMPERIDONE [Concomitant]
     Active Substance: DOMPERIDONE
     Indication: Ill-defined disorder
     Dosage: 10 MG DAILY, FREQ: TID
     Route: 048
  20. LORAZEPAM [Concomitant]
     Active Substance: LORAZEPAM
     Indication: Ill-defined disorder
     Dosage: 1 MG DAILY, FREQ: QD
     Route: 048

REACTIONS (2)
  - Transaminases increased [Recovering/Resolving]
  - Transient ischaemic attack [Recovering/Resolving]

NARRATIVE: CASE EVENT DATE: 20220823
